FAERS Safety Report 19886801 (Version 1)
Quarter: 2021Q3

REPORT INFORMATION
  Report Type: Spontaneous
  Country: US (occurrence: US)
  Receive Date: 20210927
  Receipt Date: 20210927
  Transmission Date: 20211014
  Serious: Yes (Other)
  Sender: FDA-Public Use
  Company Number: US-OTSUKA-2021_032873

PATIENT
  Age: 16 Year
  Sex: Male

DRUGS (8)
  1. ALEMTUZUMAB [Suspect]
     Active Substance: ALEMTUZUMAB
     Indication: BONE MARROW CONDITIONING REGIMEN
     Dosage: 0.1 MG/KG X1 DAY
     Route: 065
  2. FLUDARABINE [Suspect]
     Active Substance: FLUDARABINE PHOSPHATE
     Indication: BONE MARROW CONDITIONING REGIMEN
  3. MYCOPHENOLATE MOFETIL. [Suspect]
     Active Substance: MYCOPHENOLATE MOFETIL
     Indication: GRAFT VERSUS HOST DISEASE
     Dosage: UNK DAY 0
     Route: 065
  4. CYCLOSPORIN [Suspect]
     Active Substance: CYCLOSPORINE
     Indication: GRAFT VERSUS HOST DISEASE
     Dosage: UNK DAY 1
     Route: 065
  5. BUSULFAN. [Suspect]
     Active Substance: BUSULFAN
     Indication: CHRONIC GRANULOMATOUS DISEASE
     Dosage: 1.6 MG/KGX2, DAYS, TARGET AUC 45?65 MG/L X H (3RD DOSE OMITTED DUE TO HIGH AUC)
     Route: 065
  6. BUSULFAN. [Suspect]
     Active Substance: BUSULFAN
     Indication: BONE MARROW CONDITIONING REGIMEN
  7. FLUDARABINE [Suspect]
     Active Substance: FLUDARABINE PHOSPHATE
     Indication: CHRONIC GRANULOMATOUS DISEASE
     Dosage: 30 MG/KG X6 DAYS
     Route: 065
  8. ALEMTUZUMAB [Suspect]
     Active Substance: ALEMTUZUMAB
     Indication: CHRONIC GRANULOMATOUS DISEASE
     Dosage: 0.2 MG/KG X2 DAYS
     Route: 065

REACTIONS (4)
  - Mucosal inflammation [Unknown]
  - Renal impairment [Unknown]
  - Pyrexia [Unknown]
  - Product use in unapproved indication [Unknown]
